FAERS Safety Report 6728272-9 (Version None)
Quarter: 2010Q2

REPORT INFORMATION
  Report Type: 
  Country: None (occurrence: None)
  Receive Date: 20100517
  Receipt Date: 20100504
  Transmission Date: 20101027
  Serious: Yes (Congenital Anomaly)
  Sender: FDA-Public Use
  Company Number: TR-WATSON-2010-06192

PATIENT
  Sex: Female
  Weight: 2.78 kg

DRUGS (3)
  1. LAMOTRIGINE [Suspect]
     Indication: EPILEPSY
     Dosage: 200 MG, DAILY
     Route: 064
  2. TOPIRAMATE [Suspect]
     Indication: EPILEPSY
     Dosage: 25 MG, DAILY
     Route: 064
  3. VALPROIC ACID [Suspect]
     Indication: EPILEPSY
     Dosage: 1000 MG, DAILY
     Route: 064

REACTIONS (5)
  - CARDIAC SEPTAL DEFECT [None]
  - CRANIOSYNOSTOSIS [None]
  - LIMB MALFORMATION [None]
  - PATENT DUCTUS ARTERIOSUS [None]
  - RENAL HYPOPLASIA [None]
